FAERS Safety Report 8519890-6 (Version None)
Quarter: 2012Q3

REPORT INFORMATION
  Report Type: 
  Country: None (occurrence: None)
  Receive Date: 20120719
  Receipt Date: 20120711
  Transmission Date: 20120928
  Serious: No
  Sender: FDA-Public Use
  Company Number: US-BIOGENIDEC-2012BI021973

PATIENT
  Sex: Female

DRUGS (1)
  1. AVONEX [Suspect]
     Indication: MULTIPLE SCLEROSIS
     Route: 030
     Dates: start: 19960701

REACTIONS (9)
  - LOWER LIMB FRACTURE [None]
  - SCAR [None]
  - OSTEOPOROSIS [None]
  - PLEURISY [None]
  - RIB FRACTURE [None]
  - FRACTURED COCCYX [None]
  - WRIST FRACTURE [None]
  - BALANCE DISORDER [None]
  - UPPER LIMB FRACTURE [None]
